FAERS Safety Report 6214023-3 (Version None)
Quarter: 2009Q2

REPORT INFORMATION
  Report Type: 
  Country: None (occurrence: None)
  Receive Date: 20090604
  Receipt Date: 20090527
  Transmission Date: 20091009
  Serious: Yes (Hospitalization)
  Sender: FDA-Public Use
  Company Number: US-AMGEN-KDL343830

PATIENT
  Sex: Female
  Weight: 97.8 kg

DRUGS (2)
  1. EPOGEN [Suspect]
     Indication: DIALYSIS
  2. ARANESP [Suspect]
     Indication: DIALYSIS

REACTIONS (3)
  - EPISTAXIS [None]
  - HOSPITALISATION [None]
  - THERAPEUTIC RESPONSE DECREASED [None]
